FAERS Safety Report 8258740-2 (Version None)
Quarter: 2012Q2

REPORT INFORMATION
  Report Type: 
  Country: None (occurrence: None)
  Receive Date: 20120404
  Receipt Date: 20120404
  Transmission Date: 20120825
  Serious: No
  Sender: FDA-Public Use
  Company Number: None

PATIENT
  Age: 26 Year
  Sex: Male
  Weight: 83.914 kg

DRUGS (2)
  1. ZGESIC [Suspect]
  2. ZGESIC [Suspect]

REACTIONS (1)
  - ILL-DEFINED DISORDER [None]
